FAERS Safety Report 15296271 (Version 1)
Quarter: 2018Q3

REPORT INFORMATION
  Report Type: Report from Study
  Country: NL (occurrence: NL)
  Receive Date: 20180820
  Receipt Date: 20180820
  Transmission Date: 20181010
  Serious: Yes (Other)
  Sender: FDA-Public Use
  Company Number: NL-ROCHE-2170138

PATIENT

DRUGS (3)
  1. BEVACIZUMAB. [Suspect]
     Active Substance: BEVACIZUMAB
     Indication: PROPHYLAXIS
     Dosage: (0.05 ML)
     Route: 050
  2. DEXAMETHASONE DISODIUM PHOSPHATE [Concomitant]
     Active Substance: DEXAMETHASONE SODIUM PHOSPHATE
     Route: 065
  3. BROMFENAC [Concomitant]
     Active Substance: BROMFENAC SODIUM
     Route: 065

REACTIONS (3)
  - Cerebral infarction [Unknown]
  - Dizziness [Unknown]
  - Macular hole [Unknown]
